FAERS Safety Report 9571927 (Version 1)
Quarter: 2013Q4

REPORT INFORMATION
  Report Type: Spontaneous
  Country: US (occurrence: US)
  Receive Date: 20131001
  Receipt Date: 20131001
  Transmission Date: 20140711
  Serious: No
  Sender: FDA-Public Use
  Company Number: US-009507513-1310USA000392

PATIENT
  Age: 64 Year
  Sex: Female
  Weight: 43.84 kg

DRUGS (1)
  1. CLARITIN-D-24 [Suspect]
     Indication: RESPIRATORY TRACT CONGESTION
     Dosage: UNK, UNKNOWN
     Route: 048

REACTIONS (2)
  - Poor quality sleep [Unknown]
  - Circumstance or information capable of leading to medication error [Unknown]
